FAERS Safety Report 12297839 (Version 7)
Quarter: 2019Q1

REPORT INFORMATION
  Report Type: Spontaneous
  Country: US (occurrence: US)
  Receive Date: 20160422
  Receipt Date: 20190215
  Transmission Date: 20190417
  Serious: Yes (Hospitalization)
  Sender: FDA-Public Use
  Company Number: US-PFIZER INC-2014321824

PATIENT
  Age: 70 Year
  Sex: Female
  Weight: 104.3 kg

DRUGS (14)
  1. REVATIO [Suspect]
     Active Substance: SILDENAFIL CITRATE
     Indication: PULMONARY HYPERTENSION
     Dosage: 20 MG, 3X/DAY
  2. ATORVASTATIN [Concomitant]
     Active Substance: ATORVASTATIN
     Dosage: UNK
  3. OMEPRAZOLE. [Concomitant]
     Active Substance: OMEPRAZOLE
     Dosage: UNK
  4. ASPIRIN. [Concomitant]
     Active Substance: ASPIRIN
     Dosage: UNK
  5. LEVEMIR [Concomitant]
     Active Substance: INSULIN DETEMIR
     Dosage: UNK
  6. NITROSTAT [Concomitant]
     Active Substance: NITROGLYCERIN
     Dosage: UNK
     Dates: start: 201308
  7. POTASSIUM [Concomitant]
     Active Substance: POTASSIUM
     Dosage: 20 MEQ, 1X/DAY
  8. REVATIO [Suspect]
     Active Substance: SILDENAFIL CITRATE
     Dosage: 80 MG, 3X/DAY
  9. FUROSEMIDE. [Concomitant]
     Active Substance: FUROSEMIDE
     Dosage: 40 MG, 1X/DAY
  10. LEVOTHYROXINE. [Concomitant]
     Active Substance: LEVOTHYROXINE
     Dosage: UNK
  11. NOVOLOG [Concomitant]
     Active Substance: INSULIN ASPART
     Dosage: UNK
  12. XANAX [Concomitant]
     Active Substance: ALPRAZOLAM
     Dosage: UNK
  13. LISINOPRIL. [Concomitant]
     Active Substance: LISINOPRIL
     Dosage: UNK
  14. OXYCODONE-ACET [Concomitant]
     Active Substance: ACETAMINOPHEN\OXYCODONE HYDROCHLORIDE
     Dosage: UNK, AS NEEDED

REACTIONS (6)
  - Fatigue [Recovered/Resolved]
  - Product dose omission [Unknown]
  - Asthenia [Recovered/Resolved]
  - Pancreatic disorder [Not Recovered/Not Resolved]
  - Prescribed overdose [Unknown]
  - Dyspnoea [Recovering/Resolving]
